FAERS Safety Report 22951174 (Version 3)
Quarter: 2023Q4

REPORT INFORMATION
  Report Type: Spontaneous
  Country: US (occurrence: None)
  Receive Date: 20230917
  Receipt Date: 20231012
  Transmission Date: 20240110
  Serious: No
  Sender: FDA-Public Use
  Company Number: 2023A210398

PATIENT
  Age: 76 Year
  Sex: Female

DRUGS (3)
  1. FASENRA [Suspect]
     Active Substance: BENRALIZUMAB
     Route: 058
     Dates: start: 20221220, end: 20230925
  2. BREZTRI [Suspect]
     Active Substance: BUDESONIDE\FORMOTEROL\GLYCOPYRROLATE
     Dosage: UNKNOWN
     Route: 055
  3. OMEPRAZOLE [Suspect]
     Active Substance: OMEPRAZOLE
     Route: 048

REACTIONS (3)
  - Rash [Recovered/Resolved]
  - Rash pruritic [Unknown]
  - Pruritus [Unknown]

NARRATIVE: CASE EVENT DATE: 20230924
